FAERS Safety Report 22067504 (Version 2)
Quarter: 2023Q1

REPORT INFORMATION
  Report Type: Spontaneous
  Country: US (occurrence: US)
  Receive Date: 20230307
  Receipt Date: 20230310
  Transmission Date: 20230417
  Serious: Yes (Death, Hospitalization, Other)
  Sender: FDA-Public Use
  Company Number: US-009507513-2303USA000459

PATIENT
  Age: 80 Year
  Sex: Male

DRUGS (1)
  1. KEYTRUDA [Suspect]
     Active Substance: PEMBROLIZUMAB
     Dosage: UNKNOWN, ONCE
     Route: 042
     Dates: start: 20221215, end: 20221215

REACTIONS (6)
  - Malignant neoplasm progression [Fatal]
  - Gait inability [Unknown]
  - Pain in extremity [Unknown]
  - Back pain [Unknown]
  - Home care [Unknown]
  - Swelling [Unknown]

NARRATIVE: CASE EVENT DATE: 20221201
